FAERS Safety Report 4692690-3 (Version None)
Quarter: 2005Q2

REPORT INFORMATION
  Report Type: 
  Country: None (occurrence: None)
  Receive Date: 20050617
  Receipt Date: 20050309
  Transmission Date: 20051028
  Serious: Yes (Hospitalization, Other)
  Sender: FDA-Public Use
  Company Number: US-MERCK-0503USA02125

PATIENT
  Age: 56 Year
  Sex: Female
  Weight: 105 kg

DRUGS (9)
  1. VIOXX [Suspect]
     Indication: OSTEOARTHRITIS
     Route: 048
     Dates: start: 20000601, end: 20031201
  2. VIOXX [Suspect]
     Route: 048
     Dates: start: 20000601, end: 20031201
  3. RANITIDINE [Concomitant]
     Route: 065
  4. AVANDIA [Concomitant]
     Route: 065
  5. LIPITOR [Concomitant]
     Route: 065
  6. GLUCOPHAGE [Concomitant]
     Route: 065
  7. INSULIN [Concomitant]
     Route: 065
  8. TYLENOL PM EXTRA STRENGTH [Concomitant]
     Route: 065
  9. GLYBURIDE [Concomitant]
     Route: 065

REACTIONS (15)
  - ANXIETY [None]
  - ATHEROSCLEROSIS [None]
  - CARDIAC FAILURE CONGESTIVE [None]
  - CHEST PAIN [None]
  - CHRONIC FATIGUE SYNDROME [None]
  - DEPRESSION [None]
  - DYSPNOEA [None]
  - EMOTIONAL DISTRESS [None]
  - GASTRIC DISORDER [None]
  - HEADACHE [None]
  - HYPERTENSION [None]
  - INSOMNIA [None]
  - MYOCARDIAL INFARCTION [None]
  - OVERDOSE [None]
  - SLEEP APNOEA SYNDROME [None]
